FAERS Safety Report 15090717 (Version 1)
Quarter: 2018Q2

REPORT INFORMATION
  Report Type: Spontaneous
  Country: US (occurrence: US)
  Receive Date: 20180629
  Receipt Date: 20180629
  Transmission Date: 20180711
  Serious: Yes (Other)
  Sender: FDA-Public Use
  Company Number: US-BAYER-2018-117212

PATIENT

DRUGS (1)
  1. ALIQOPA [Suspect]
     Active Substance: COPANLISIB

REACTIONS (3)
  - Neutropenia [None]
  - Febrile neutropenia [None]
  - Diarrhoea [None]
